FAERS Safety Report 15522865 (Version 2)
Quarter: 2018Q4

REPORT INFORMATION
  Report Type: Spontaneous
  Country: US (occurrence: US)
  Receive Date: 20181017
  Receipt Date: 20181119
  Transmission Date: 20190205
  Serious: No
  Sender: FDA-Public Use
  Company Number: US-GLAXOSMITHKLINE-US2018183383

PATIENT
  Age: 63 Year
  Sex: Female

DRUGS (2)
  1. NICODERM CQ [Suspect]
     Active Substance: NICOTINE
     Indication: SMOKING CESSATION THERAPY
     Dosage: 21 UNK, UNK
  2. NICODERM CQ [Suspect]
     Active Substance: NICOTINE
     Dosage: 21 MG, UNK
     Dates: start: 20180915, end: 20180918

REACTIONS (2)
  - Wrong technique in product usage process [Unknown]
  - Product complaint [Unknown]
